FAERS Safety Report 12615039 (Version 1)
Quarter: 2016Q3

REPORT INFORMATION
  Report Type: Spontaneous
  Country: US (occurrence: US)
  Receive Date: 20160802
  Receipt Date: 20160802
  Transmission Date: 20161109
  Serious: No
  Sender: FDA-Public Use
  Company Number: US-PERRIGO-16US013648

PATIENT
  Sex: Male
  Weight: 72.56 kg

DRUGS (1)
  1. MINOXIDIL. [Suspect]
     Active Substance: MINOXIDIL
     Indication: ALOPECIA
     Dosage: UNKNOWN, UNKNOWN
     Route: 061

REACTIONS (6)
  - Joint crepitation [Unknown]
  - Abnormal behaviour [Unknown]
  - Application site burn [Unknown]
  - Panic attack [Unknown]
  - Peripheral swelling [Unknown]
  - Vision blurred [Unknown]
